FAERS Safety Report 6688895-2 (Version None)
Quarter: 2010Q2

REPORT INFORMATION
  Report Type: 
  Country: None (occurrence: None)
  Receive Date: 20100420
  Receipt Date: 20100413
  Transmission Date: 20101027
  Serious: Yes (Hospitalization)
  Sender: FDA-Public Use
  Company Number: FR-SANOFI-AVENTIS-2010SA021413

PATIENT
  Age: 85 Year
  Sex: Male

DRUGS (9)
  1. ALFUZOSIN HCL [Suspect]
     Route: 048
     Dates: start: 20100101, end: 20100212
  2. NEXIUM /UNK/ [Suspect]
     Route: 048
     Dates: start: 20100101, end: 20100219
  3. EPOETIN BETA [Suspect]
     Dosage: DOSE:100 MICROGRAM(S)/MILLILITRE
     Route: 058
     Dates: start: 20100101, end: 20100219
  4. ALLOPURINOL [Suspect]
     Indication: PROPHYLAXIS
     Route: 048
     Dates: start: 20100101, end: 20100212
  5. CALCIDIA [Concomitant]
     Route: 048
  6. LASIX [Concomitant]
     Route: 048
  7. TIOTROPIUM BROMIDE [Concomitant]
     Route: 048
  8. BUDESONIDE/FORMOTEROL [Concomitant]
     Route: 048
  9. KAYEXALATE [Concomitant]
     Route: 048

REACTIONS (6)
  - DRUG RASH WITH EOSINOPHILIA AND SYSTEMIC SYMPTOMS [None]
  - EOSINOPHILIA [None]
  - FACE OEDEMA [None]
  - LYMPHADENOPATHY [None]
  - OEDEMA PERIPHERAL [None]
  - RASH ERYTHEMATOUS [None]
